FAERS Safety Report 14683044 (Version 1)
Quarter: 2018Q1

REPORT INFORMATION
  Report Type: Spontaneous
  Country: DE (occurrence: DE)
  Receive Date: 20180327
  Receipt Date: 20180327
  Transmission Date: 20180509
  Serious: Yes (Death, Hospitalization, Other)
  Sender: FDA-Public Use
  Company Number: DE-AMGEN-DEUSP2018040917

PATIENT
  Sex: Male

DRUGS (7)
  1. CYCLOPHOSPHAMIDE. [Suspect]
     Active Substance: CYCLOPHOSPHAMIDE
     Indication: B-CELL LYMPHOMA
     Dosage: 750 MG/M2, Q2WK, LAST CYCLE PRIOR TO SAE: 10/MAY/2016
     Route: 042
     Dates: start: 20160426
  2. PREDNISOLONE. [Suspect]
     Active Substance: PREDNISOLONE
     Indication: B-CELL LYMPHOMA
     Dosage: 100 MG, QWK, DAY 1-5 BI WEEKLY; LAST CYCLE PRIOR TO SAE: 10/MAY/2016
     Route: 048
     Dates: start: 20160426
  3. DOXORUBICIN [Suspect]
     Active Substance: DOXORUBICIN
     Indication: B-CELL LYMPHOMA
     Dosage: 50 MG/M2, Q2WK, LAST CYCLE PRIOR TO SAE: 10/MAY/2016
     Route: 042
     Dates: start: 20160426
  4. PEGFILGRASTIM [Suspect]
     Active Substance: PEGFILGRASTIM
     Indication: B-CELL LYMPHOMA
     Dosage: 6 MG, CYCLICAL, DAY 4 EACH CYCLE (1 IN 1 CYCLICAL)
     Route: 058
     Dates: start: 20160429
  5. FUROSEMIDE. [Concomitant]
     Active Substance: FUROSEMIDE
     Indication: OEDEMA
     Dosage: UNK, LAST CYCLE PRIOR TO SAE: 10/MAY/2016
  6. VINCRISTINE [Suspect]
     Active Substance: VINCRISTINE
     Indication: B-CELL LYMPHOMA
     Dosage: 2 MG/M2, Q2WK
     Route: 042
     Dates: start: 20160426
  7. RITUXIMAB. [Suspect]
     Active Substance: RITUXIMAB
     Indication: B-CELL LYMPHOMA
     Dosage: 375 MG/M2, Q2WK, LAST DOSE PRIOR TO SAE: 10/MAY/2016
     Route: 042
     Dates: start: 20160425

REACTIONS (2)
  - Pneumonitis [Fatal]
  - Arrhythmia [Unknown]

NARRATIVE: CASE EVENT DATE: 20160523
